FAERS Safety Report 9491433 (Version 2)
Quarter: 2013Q1

REPORT INFORMATION
  Report Type: Not Available
  Country: US (occurrence: US)
  Receive Date: 20120619
  Receipt Date: 20120619
  Transmission Date: 20140127
  Serious: Yes (Hospitalization)
  Sender: FDA-Public Use
  Company Number: US-LUNDBECK-DKLU1075304

PATIENT
  Age: 7 None
  Sex: Male
  Weight: 28.6 kg

DRUGS (4)
  1. CLOBAZAM [Suspect]
     Indication: LENNOX-GASTAUT SYNDROME
     Route: 048
     Dates: start: 20091117
  2. TOBRAMYCIN [Concomitant]
     Indication: PROPHYLAXIS
     Dates: start: 2011
  3. LASIX [Concomitant]
     Indication: DIURETIC THERAPY
     Dates: start: 2011
  4. FLONASE [Concomitant]
     Indication: PRODUCT USED FOR UNKNOWN INDICATION

REACTIONS (1)
  - Pneumonia [Recovered/Resolved]
